FAERS Safety Report 17777565 (Version 1)
Quarter: 2020Q2

REPORT INFORMATION
  Report Type: Spontaneous
  Country: GB (occurrence: GB)
  Receive Date: 20200513
  Receipt Date: 20200513
  Transmission Date: 20200714
  Serious: Yes (Hospitalization)
  Sender: FDA-Public Use
  Company Number: NVSC2020GB128771

PATIENT
  Age: 14 Year
  Sex: Male
  Weight: 51.7 kg

DRUGS (3)
  1. VINCRISTINE [Suspect]
     Active Substance: VINCRISTINE
     Indication: ACUTE LYMPHOCYTIC LEUKAEMIA
     Dosage: 2 OT
     Route: 042
     Dates: start: 20191207
  2. PEGASPARGASE [Suspect]
     Active Substance: PEGASPARGASE
     Indication: ACUTE LYMPHOCYTIC LEUKAEMIA
     Dosage: 1575 IU
     Route: 030
     Dates: start: 20191209
  3. METHOTREXATE. [Suspect]
     Active Substance: METHOTREXATE
     Indication: ACUTE LYMPHOCYTIC LEUKAEMIA
     Dosage: 12 MG
     Route: 037
     Dates: start: 20191204

REACTIONS (3)
  - Thrombosis [Recovering/Resolving]
  - Cerebral haemorrhage [Recovering/Resolving]
  - Partial seizures [Recovering/Resolving]

NARRATIVE: CASE EVENT DATE: 20191229
